FAERS Safety Report 14665961 (Version 3)
Quarter: 2018Q3

REPORT INFORMATION
  Report Type: Spontaneous
  Country: PL (occurrence: PL)
  Receive Date: 20180321
  Receipt Date: 20180808
  Transmission Date: 20181010
  Serious: Yes (Other)
  Sender: FDA-Public Use
  Company Number: PL-PFIZER INC-2018074009

PATIENT
  Age: 60 Year
  Sex: Female

DRUGS (2)
  1. SUNITINIB MALATE. [Suspect]
     Active Substance: SUNITINIB MALATE
     Indication: RENAL CELL CARCINOMA
     Dosage: UNK
     Dates: start: 201309
  2. LETROZOL [Concomitant]
     Active Substance: LETROZOLE
     Indication: RENAL CELL CARCINOMA
     Dosage: 2.5 MG, DAILY

REACTIONS (3)
  - Hypothyroidism [Unknown]
  - Type 3 diabetes mellitus [Unknown]
  - Hypertension [Unknown]
